FAERS Safety Report 8514293-2 (Version None)
Quarter: 2012Q3

REPORT INFORMATION
  Report Type: 
  Country: None (occurrence: None)
  Receive Date: 20120717
  Receipt Date: 20120713
  Transmission Date: 20120928
  Serious: Yes (Death, Other)
  Sender: FDA-Public Use
  Company Number: FR-JNJFOC-20120707324

PATIENT
  Sex: Male

DRUGS (20)
  1. VELCADE [Suspect]
     Dosage: ON DAYS 1, 4, 8 AND 11 EACH CYCLE OF 35 DAYS, CYCLE 2
     Route: 065
  2. VELCADE [Suspect]
     Dosage: ON DAYS 1, 4, 8 AND 11 EACH CYCLE OF 35 DAYS, CYCLE 4
     Route: 065
  3. DOXORUBICIN HCL [Suspect]
     Dosage: AS A CONTINUOUS INFUSION FROM DAY 1 TO 4 EACH CYCLE OF 35 DAYS, CYCLE 3
     Route: 042
  4. DOXORUBICIN HCL [Suspect]
     Indication: MANTLE CELL LYMPHOMA
     Dosage: AS A CONTINUOUS INFUSION FROM DAY 1 TO 4 EACH CYCLE OF 35 DAYS, CYCLE 1
     Route: 042
  5. VELCADE [Suspect]
     Indication: MANTLE CELL LYMPHOMA
     Dosage: ON DAYS 1, 4, 8 AND 11 EACH CYCLE OF 35 DAYS, CYCLE 3
     Route: 065
  6. DEXAMETHASONE [Suspect]
     Indication: MANTLE CELL LYMPHOMA
     Dosage: FROM DAY 1 TO 4 OF EACH 35 DAYS CYCLE, CYCLE 1
     Route: 065
  7. CHLORAMBUCIL [Suspect]
     Indication: MANTLE CELL LYMPHOMA
     Dosage: FROM DAY 20 TO 29 OF EACH 35 DAYS CYCLE, CYCLE 1
     Route: 065
  8. CHLORAMBUCIL [Suspect]
     Dosage: FROM DAY 20 TO 29 OF EACH 35 DAYS CYCLE, CYCLE 2
     Route: 065
  9. CHLORAMBUCIL [Suspect]
     Dosage: FROM DAY 20 TO 29 OF EACH 35 DAYS CYCLE, CYCLE 3
     Route: 065
  10. RITUXAN [Suspect]
     Dosage: ON DAY 1 (DAY 8 OF CYCLE 1) EACH CYCLE OF 35 DAYS, CYCLE 2
     Route: 065
  11. DOXORUBICIN HCL [Suspect]
     Dosage: AS A CONTINUOUS INFUSION FROM DAY 1 TO 4 EACH CYCLE OF 35 DAYS, CYCLE 2
     Route: 042
  12. RITUXAN [Suspect]
     Dosage: ON DAY 1 (DAY 8 OF CYCLE 1) EACH CYCLE OF 35 DAYS, CYCLE 3
     Route: 065
  13. DEXAMETHASONE [Suspect]
     Dosage: FROM DAY 1 TO 4 OF EACH 35 DAYS CYCLE, CYCLE 3
     Route: 065
  14. DOXORUBICIN HCL [Suspect]
     Dosage: AS A CONTINUOUS INFUSION FROM DAY 1 TO 4 EACH CYCLE OF 35 DAYS, CYCLE 4
     Route: 042
  15. RITUXAN [Suspect]
     Indication: MANTLE CELL LYMPHOMA
     Dosage: ON DAY 1 (DAY 8 OF CYCLE 1) EACH CYCLE OF 35 DAYS, CYCLE 1
     Route: 065
  16. RITUXAN [Suspect]
     Dosage: ON DAY 1 (DAY 8 OF CYCLE 1) EACH CYCLE OF 35 DAYS, CYCLE 4
     Route: 065
  17. VELCADE [Suspect]
     Dosage: ON DAYS 1, 4, 8 AND 11 EACH CYCLE OF 35 DAYS, CYCLE 1
     Route: 065
  18. DEXAMETHASONE [Suspect]
     Dosage: FROM DAY 1 TO 4 OF EACH 35 DAYS CYCLE, CYCLE 2
     Route: 065
  19. DEXAMETHASONE [Suspect]
     Dosage: FROM DAY 1 TO 4 OF EACH 35 DAYS CYCLE, CYCLE 4
     Route: 065
  20. CHLORAMBUCIL [Suspect]
     Dosage: FROM DAY 20 TO 29 OF EACH 35 DAYS CYCLE, CYCLE 4
     Route: 065

REACTIONS (2)
  - SEPSIS [None]
  - FUNGAL INFECTION [None]
